FAERS Safety Report 21243343 (Version 2)
Quarter: 2022Q3

REPORT INFORMATION
  Report Type: Report from Study
  Country: MX (occurrence: MX)
  Receive Date: 20220823
  Receipt Date: 20220823
  Transmission Date: 20221026
  Serious: Yes (Other)
  Sender: FDA-Public Use
  Company Number: MX-BAYER-2022A082876

PATIENT
  Age: 64 Year
  Sex: Male

DRUGS (2)
  1. STIVARGA [Suspect]
     Active Substance: REGORAFENIB
     Indication: Hepatocellular carcinoma
     Dosage: 120 MG, QD FOR 3 WEEKS, BREAK FOR 1 WEEK
     Route: 048
     Dates: start: 20210809
  2. TELMISARTAN [Concomitant]
     Active Substance: TELMISARTAN
     Indication: Hypertension
     Dosage: BEFORE 1 TABLET ORALLY EVERY 24 HOURS, NOW 1 TABLET IN MORNING AND 1 TABLET IN EVENING

REACTIONS (15)
  - Skin ulcer [Recovering/Resolving]
  - Secretion discharge [Recovering/Resolving]
  - Extremity necrosis [Recovering/Resolving]
  - Staphylococcal infection [Recovering/Resolving]
  - Pseudomonas infection [Recovering/Resolving]
  - Alpha 1 foetoprotein decreased [Not Recovered/Not Resolved]
  - Skin ulcer [Recovered/Resolved]
  - Sciatica [Recovered/Resolved]
  - Blister [Recovering/Resolving]
  - Burning sensation [Not Recovered/Not Resolved]
  - Pain in extremity [Not Recovered/Not Resolved]
  - Infected skin ulcer [None]
  - Skin ulcer [None]
  - Blood pressure increased [Not Recovered/Not Resolved]
  - Skin abrasion [Recovering/Resolving]

NARRATIVE: CASE EVENT DATE: 20220509
